FAERS Safety Report 5939515-3 (Version None)
Quarter: 2008Q4

REPORT INFORMATION
  Report Type: 
  Country: None (occurrence: None)
  Receive Date: 20081030
  Receipt Date: 20081022
  Transmission Date: 20090506
  Serious: Yes (Hospitalization)
  Sender: FDA-Public Use
  Company Number: 2008SP018900

PATIENT
  Age: 55 Year
  Sex: Female
  Weight: 80.5 kg

DRUGS (3)
  1. TEMODAR [Suspect]
     Indication: GLIOBLASTOMA MULTIFORME
     Dosage: 180 MG;QD;PO, 180 MG;QD;PO, 180 MG;QD;PO
     Route: 048
     Dates: start: 20080814, end: 20080903
  2. TEMODAR [Suspect]
     Indication: GLIOBLASTOMA MULTIFORME
     Dosage: 180 MG;QD;PO, 180 MG;QD;PO, 180 MG;QD;PO
     Route: 048
     Dates: start: 20080418
  3. TEMODAR [Suspect]
     Indication: GLIOBLASTOMA MULTIFORME
     Dosage: 180 MG;QD;PO, 180 MG;QD;PO, 180 MG;QD;PO
     Route: 048
     Dates: start: 20081007

REACTIONS (12)
  - ARACHNOID CYST [None]
  - BRAIN SCAN ABNORMAL [None]
  - CSF BACTERIA IDENTIFIED [None]
  - CSF CULTURE POSITIVE [None]
  - ENTEROBACTER INFECTION [None]
  - FALL [None]
  - HYDROCEPHALUS [None]
  - INTRACRANIAL HYPOTENSION [None]
  - MENINGITIS [None]
  - URINARY TRACT INFECTION FUNGAL [None]
  - VISUAL ACUITY REDUCED [None]
  - WOUND INFECTION BACTERIAL [None]
